FAERS Safety Report 6819151-7 (Version None)
Quarter: 2010Q3

REPORT INFORMATION
  Report Type: 
  Country: None (occurrence: None)
  Receive Date: 20100701
  Receipt Date: 20100621
  Transmission Date: 20110219
  Serious: Yes (Hospitalization)
  Sender: FDA-Public Use
  Company Number: 7008811

PATIENT
  Age: 43 Year
  Sex: Male
  Weight: 91 kg

DRUGS (2)
  1. REBIF [Suspect]
     Indication: MULTIPLE SCLEROSIS
     Dosage: 44 MCG, 3 IN 1 WK, SUBCUTANEOUS
     Route: 058
     Dates: start: 20091009
  2. ALLOPURINOL [Concomitant]

REACTIONS (5)
  - AORTIC VALVE STENOSIS [None]
  - ASTHENIA [None]
  - FATIGUE [None]
  - NEPHROLITHIASIS [None]
  - SWELLING [None]
